FAERS Safety Report 7798788-5 (Version None)
Quarter: 2011Q4

REPORT INFORMATION
  Report Type: 
  Country: None (occurrence: None)
  Receive Date: 20111005
  Receipt Date: 20111005
  Transmission Date: 20120403
  Serious: Yes (Hospitalization)
  Sender: FDA-Public Use
  Company Number: None

PATIENT
  Sex: Male
  Weight: 28.1 kg

DRUGS (1)
  1. SODIUM THIOSULFATE [Suspect]
     Dosage: 32.6 G

REACTIONS (4)
  - PSEUDOMEMBRANOUS COLITIS [None]
  - ALANINE AMINOTRANSFERASE INCREASED [None]
  - PYREXIA [None]
  - CLOSTRIDIUM TEST POSITIVE [None]
